FAERS Safety Report 4525181-0 (Version None)
Quarter: 2004Q4

REPORT INFORMATION
  Report Type: 
  Country: None (occurrence: None)
  Receive Date: 20041213
  Receipt Date: 20030605
  Transmission Date: 20050328
  Serious: Yes (Hospitalization, Disabling)
  Sender: FDA-Public Use
  Company Number: US-MERCK-0306USA00631

PATIENT
  Age: 35 Year
  Sex: Male
  Weight: 108 kg

DRUGS (34)
  1. VIOXX [Suspect]
     Route: 048
     Dates: start: 20001228
  2. TOPROL-XL [Concomitant]
     Route: 065
  3. IMDUR [Concomitant]
     Route: 065
  4. NITRO-DUR [Concomitant]
     Route: 065
  5. DIOVAN [Concomitant]
     Route: 065
  6. DIOVAN [Concomitant]
     Route: 065
     Dates: start: 20010713, end: 20030522
  7. DILTIAZEM HYDROCHLORIDE [Concomitant]
     Route: 065
  8. PLAVIX [Concomitant]
     Route: 065
  9. ZOCOR [Concomitant]
     Route: 048
  10. ASPIRIN [Concomitant]
     Route: 065
  11. XANAX [Concomitant]
     Route: 065
     Dates: start: 20010515
  12. FOLIC ACID [Concomitant]
     Route: 065
  13. ALLOPURINOL [Concomitant]
     Route: 065
  14. LECITHIN AND PROTEIN (UNSPECIFIED) [Concomitant]
     Route: 065
  15. LEVOTHROID [Concomitant]
     Route: 065
  16. LEVOTHROID [Concomitant]
     Route: 065
     Dates: start: 20030408, end: 20030522
  17. LEVOTHROID [Concomitant]
     Route: 065
     Dates: start: 20030522
  18. SOMA [Concomitant]
     Route: 065
  19. INDOCIN [Concomitant]
     Route: 048
  20. COLCHICINE [Concomitant]
     Route: 065
  21. NORCO [Concomitant]
     Route: 065
  22. LEVOTHROID [Concomitant]
     Route: 065
  23. [THERAPY UNSPECIFIED] [Concomitant]
     Route: 065
  24. [THERAPY UNSPECIFIED] [Concomitant]
     Route: 065
  25. VITAMINS (UNSPECIFIED) [Concomitant]
     Route: 065
  26. K-DUR [Concomitant]
     Route: 065
  27. LASIX [Concomitant]
     Route: 065
  28. ZETIA [Concomitant]
     Indication: BLOOD CHOLESTEROL INCREASED
     Route: 065
  29. CARDIZEM LA [Concomitant]
     Indication: CARDIAC DISORDER
     Route: 065
  30. LOPRESSOR [Concomitant]
     Indication: CARDIAC DISORDER
     Route: 065
  31. PREVACID [Concomitant]
     Indication: DYSPEPSIA
     Route: 065
  32. LIPOTRIAD [Concomitant]
     Indication: HEPATIC FUNCTION ABNORMAL
     Route: 065
  33. LEXAPRO [Concomitant]
     Indication: STRESS SYMPTOMS
     Route: 065
  34. LEVOXYL [Concomitant]
     Indication: THYROID DISORDER
     Route: 065

REACTIONS (30)
  - ADVERSE EVENT [None]
  - ANGINA PECTORIS [None]
  - ANXIETY [None]
  - BLOOD CHOLESTEROL INCREASED [None]
  - BLOOD CREATINE PHOSPHOKINASE INCREASED [None]
  - BRONCHITIS [None]
  - CARDIAC FAILURE CONGESTIVE [None]
  - CORONARY ARTERY ATHEROSCLEROSIS [None]
  - CORONARY ARTERY DISEASE [None]
  - DEPRESSION [None]
  - DYSPEPSIA [None]
  - DYSPNOEA [None]
  - FATIGUE [None]
  - FEELING ABNORMAL [None]
  - GASTROOESOPHAGEAL REFLUX DISEASE [None]
  - GOUTY ARTHRITIS [None]
  - INFLUENZA [None]
  - LIMB INJURY [None]
  - MALIGNANT HYPERTENSION [None]
  - MYOCARDIAL ISCHAEMIA [None]
  - NASAL DISCOMFORT [None]
  - OEDEMA PERIPHERAL [None]
  - PALPITATIONS [None]
  - POLYTRAUMATISM [None]
  - RHINITIS ALLERGIC [None]
  - SKIN LESION [None]
  - SLEEP APNOEA SYNDROME [None]
  - STRESS SYMPTOMS [None]
  - TINNITUS [None]
  - UPPER RESPIRATORY TRACT INFECTION [None]
